FAERS Safety Report 9734583 (Version 3)
Quarter: 2013Q4

REPORT INFORMATION
  Report Type: Spontaneous
  Country: VE (occurrence: VE)
  Receive Date: 20131206
  Receipt Date: 20131231
  Transmission Date: 20140711
  Serious: Yes (Death, Other)
  Sender: FDA-Public Use
  Company Number: VE-AMGEN-VENSP2013071802

PATIENT
  Age: 24 Year
  Sex: Female
  Weight: 54.5 kg

DRUGS (3)
  1. VECTIBIX [Suspect]
     Indication: RECTAL ADENOCARCINOMA
     Dosage: UNK 3 AMPOULE
     Route: 042
     Dates: start: 20130828, end: 20131102
  2. OXALIPLATIN [Concomitant]
     Dosage: UNK
  3. XELODA [Concomitant]
     Dosage: UNK

REACTIONS (4)
  - Intestinal obstruction [Unknown]
  - Gastrointestinal necrosis [Fatal]
  - Mobility decreased [Unknown]
  - Rash [Unknown]
